FAERS Safety Report 25750281 (Version 1)
Quarter: 2025Q3

REPORT INFORMATION
  Report Type: Spontaneous
  Country: EU (occurrence: EU)
  Receive Date: 20250902
  Receipt Date: 20250902
  Transmission Date: 20251021
  Serious: Yes (Life-Threatening, Hospitalization)
  Sender: MYLAN
  Company Number: EU-MYLANLABS-2025M1074424

PATIENT
  Age: 38 Year
  Sex: Female

DRUGS (32)
  1. METOPROLOL [Suspect]
     Active Substance: METOPROLOL
     Indication: Ventricular tachycardia
  2. METOPROLOL [Suspect]
     Active Substance: METOPROLOL
     Route: 065
  3. METOPROLOL [Suspect]
     Active Substance: METOPROLOL
     Route: 065
  4. METOPROLOL [Suspect]
     Active Substance: METOPROLOL
  5. FONDAPARINUX [Suspect]
     Active Substance: FONDAPARINUX
     Indication: Pulmonary embolism
  6. FONDAPARINUX [Suspect]
     Active Substance: FONDAPARINUX
     Indication: Vena cava thrombosis
     Route: 065
  7. FONDAPARINUX [Suspect]
     Active Substance: FONDAPARINUX
     Route: 065
  8. FONDAPARINUX [Suspect]
     Active Substance: FONDAPARINUX
  9. AMIODARONE [Suspect]
     Active Substance: AMIODARONE
     Indication: Ventricular tachycardia
  10. AMIODARONE [Suspect]
     Active Substance: AMIODARONE
     Route: 065
  11. AMIODARONE [Suspect]
     Active Substance: AMIODARONE
     Route: 065
  12. AMIODARONE [Suspect]
     Active Substance: AMIODARONE
  13. ESMOLOL [Suspect]
     Active Substance: ESMOLOL HYDROCHLORIDE
     Indication: Ventricular tachycardia
  14. ESMOLOL [Suspect]
     Active Substance: ESMOLOL HYDROCHLORIDE
     Route: 065
  15. ESMOLOL [Suspect]
     Active Substance: ESMOLOL HYDROCHLORIDE
     Route: 065
  16. ESMOLOL [Suspect]
     Active Substance: ESMOLOL HYDROCHLORIDE
  17. XYLOCAINE [Suspect]
     Active Substance: LIDOCAINE HYDROCHLORIDE
     Indication: Ventricular tachycardia
  18. XYLOCAINE [Suspect]
     Active Substance: LIDOCAINE HYDROCHLORIDE
     Route: 065
  19. XYLOCAINE [Suspect]
     Active Substance: LIDOCAINE HYDROCHLORIDE
     Route: 065
  20. XYLOCAINE [Suspect]
     Active Substance: LIDOCAINE HYDROCHLORIDE
  21. LEVOTHYROXINE [Suspect]
     Active Substance: LEVOTHYROXINE
     Indication: Ventricular tachycardia
  22. LEVOTHYROXINE [Suspect]
     Active Substance: LEVOTHYROXINE
     Route: 065
  23. LEVOTHYROXINE [Suspect]
     Active Substance: LEVOTHYROXINE
     Route: 065
  24. LEVOTHYROXINE [Suspect]
     Active Substance: LEVOTHYROXINE
  25. LEVOSIMENDAN [Suspect]
     Active Substance: LEVOSIMENDAN
     Indication: Cardiac failure
  26. LEVOSIMENDAN [Suspect]
     Active Substance: LEVOSIMENDAN
     Route: 065
  27. LEVOSIMENDAN [Suspect]
     Active Substance: LEVOSIMENDAN
     Route: 065
  28. LEVOSIMENDAN [Suspect]
     Active Substance: LEVOSIMENDAN
  29. HEPARIN [Concomitant]
     Active Substance: HEPARIN SODIUM
     Indication: Pulmonary embolism
  30. HEPARIN [Concomitant]
     Active Substance: HEPARIN SODIUM
     Indication: Vena cava thrombosis
     Route: 065
  31. HEPARIN [Concomitant]
     Active Substance: HEPARIN SODIUM
     Route: 065
  32. HEPARIN [Concomitant]
     Active Substance: HEPARIN SODIUM

REACTIONS (1)
  - Drug ineffective [Unknown]
